FAERS Safety Report 17537903 (Version 1)
Quarter: 2020Q1

REPORT INFORMATION
  Report Type: Spontaneous
  Country: PT (occurrence: PT)
  Receive Date: 20200313
  Receipt Date: 20200313
  Transmission Date: 20200409
  Serious: Yes (Hospitalization)
  Sender: FDA-Public Use
  Company Number: PT-IGSA-SR10010011

PATIENT
  Age: 63 Year
  Sex: Male

DRUGS (1)
  1. HUMAN NORMAL IMMUNOGLOBULIN (IV) [Suspect]
     Active Substance: HUMAN IMMUNOGLOBULIN G
     Indication: GOOD SYNDROME
     Dosage: 600 MG/KG, Q.M.T.
     Route: 042
     Dates: start: 201810

REACTIONS (1)
  - Infusion site vesicles [Recovered/Resolved]

NARRATIVE: CASE EVENT DATE: 201812
